FAERS Safety Report 7256961-9 (Version None)
Quarter: 2011Q1

REPORT INFORMATION
  Report Type: 
  Country: None (occurrence: None)
  Receive Date: 20110129
  Receipt Date: 20100722
  Transmission Date: 20110831
  Serious: No
  Sender: FDA-Public Use
  Company Number: US-ABBOTT-10P-163-0659646-00

PATIENT
  Age: 71 Year
  Sex: Female

DRUGS (8)
  1. OXYCODONE [Concomitant]
     Indication: PAIN
  2. ETODOLAC [Concomitant]
     Indication: ARTHRITIS
  3. TRICOR [Concomitant]
     Indication: BLOOD CHOLESTEROL INCREASED
  4. HUMALOG [Concomitant]
     Indication: DIABETES MELLITUS
  5. VITAMIN D [Concomitant]
     Indication: PRODUCT USED FOR UNKNOWN INDICATION
  6. HUMIRA [Suspect]
     Indication: RHEUMATOID ARTHRITIS
     Dates: start: 20100514
  7. LANTUS [Concomitant]
     Indication: DIABETES MELLITUS
  8. ZETIA [Concomitant]
     Indication: BLOOD CHOLESTEROL INCREASED

REACTIONS (7)
  - URTICARIA [None]
  - ONYCHOMYCOSIS [None]
  - INJECTION SITE PAIN [None]
  - PRURITUS [None]
  - FLUSHING [None]
  - SWELLING FACE [None]
  - ERYTHEMA [None]
